FAERS Safety Report 16052711 (Version 4)
Quarter: 2019Q2

REPORT INFORMATION
  Report Type: Spontaneous
  Country: FR (occurrence: FR)
  Receive Date: 20190308
  Receipt Date: 20190604
  Transmission Date: 20190711
  Serious: Yes (Hospitalization, Disabling, Other)
  Sender: FDA-Public Use
  Company Number: FR-PFIZER INC-2019097714

PATIENT
  Age: 18 Year
  Sex: Female
  Weight: 52 kg

DRUGS (10)
  1. SPASFON [PHLOROGLUCINOL;TRIMETHYLPHLOROGLUCINOL] [Concomitant]
     Active Substance: PHLOROGLUCINOL\1,3,5-TRIMETHOXYBENZENE
     Dosage: 1 DF, 1X/DAY, AS NEEDED
  2. GARDASIL [Suspect]
     Active Substance: HUMAN PAPILLOMAVIRUS QUADRIVALENT (TYPES 6, 11, 16, AND 18) VACCINE, RECOMBINANT
     Dosage: 1 DF, UNK, INJECTION
     Route: 030
     Dates: start: 20161122
  3. GARDASIL [Suspect]
     Active Substance: HUMAN PAPILLOMAVIRUS QUADRIVALENT (TYPES 6, 11, 16, AND 18) VACCINE, RECOMBINANT
     Dosage: 1 DF, UNK
     Route: 030
     Dates: start: 201609
  4. ACUPAN [Suspect]
     Active Substance: NEFOPAM HYDROCHLORIDE
     Dosage: UNK, 3 TO 4 TIMES A DAY
     Dates: start: 201712
  5. ACUPAN [Suspect]
     Active Substance: NEFOPAM HYDROCHLORIDE
     Dosage: UNK, 3 TO 4 TIMES A DAY
     Dates: start: 201801, end: 201808
  6. DEBRIDAT [TRIMEBUTINE MALEATE] [Concomitant]
     Active Substance: TRIMEBUTINE MALEATE
     Dosage: 1 DF, 1X/DAY
  7. GARDASIL [Suspect]
     Active Substance: HUMAN PAPILLOMAVIRUS QUADRIVALENT (TYPES 6, 11, 16, AND 18) VACCINE, RECOMBINANT
     Indication: PROPHYLAXIS
     Dosage: 1 DF, UNK, INJECTION
     Route: 030
     Dates: start: 20170311
  8. GARDASIL [Suspect]
     Active Substance: HUMAN PAPILLOMAVIRUS QUADRIVALENT (TYPES 6, 11, 16, AND 18) VACCINE, RECOMBINANT
     Dosage: 1 DF, UNK, INJECTION
     Route: 030
     Dates: start: 20160816
  9. LYRICA [Suspect]
     Active Substance: PREGABALIN
     Dosage: UNK
     Dates: start: 201712, end: 201803
  10. GARDASIL [Suspect]
     Active Substance: HUMAN PAPILLOMAVIRUS QUADRIVALENT (TYPES 6, 11, 16, AND 18) VACCINE, RECOMBINANT
     Dosage: UNK

REACTIONS (38)
  - Lymphadenitis [Unknown]
  - Swelling face [Unknown]
  - Vitamin D deficiency [Recovered/Resolved]
  - Weight increased [Recovered/Resolved]
  - Gingival bleeding [Recovered/Resolved]
  - Abdominal pain lower [Unknown]
  - Antinuclear antibody positive [Recovering/Resolving]
  - Intestinal pseudo-obstruction [Unknown]
  - Influenza [Unknown]
  - Inflammatory bowel disease [Recovering/Resolving]
  - Vascular fragility [Unknown]
  - Pain [Unknown]
  - Vaginal discharge [Unknown]
  - Vitamin C deficiency [Unknown]
  - Fatigue [Recovered/Resolved]
  - Depressed mood [Not Recovered/Not Resolved]
  - Malaise [Unknown]
  - Disturbance in attention [Unknown]
  - Anger [Unknown]
  - Procedural pain [Unknown]
  - Gamma-glutamyltransferase increased [Unknown]
  - Urinary tract infection [Recovered/Resolved]
  - Sleep disorder [Unknown]
  - Heart rate increased [Unknown]
  - Somatic symptom disorder [Unknown]
  - Anaemia [Unknown]
  - Stress [Unknown]
  - Metrorrhagia [Unknown]
  - Nightmare [Unknown]
  - Mean platelet volume decreased [Not Recovered/Not Resolved]
  - Blood folate decreased [Not Recovered/Not Resolved]
  - Hot flush [Unknown]
  - Headache [Unknown]
  - Impaired gastric emptying [Unknown]
  - Coeliac disease [Unknown]
  - Vitamin B12 decreased [Not Recovered/Not Resolved]
  - Oropharyngeal pain [Unknown]
  - Autoimmune enteropathy [Unknown]

NARRATIVE: CASE EVENT DATE: 2016
